FAERS Safety Report 5847051-8 (Version None)
Quarter: 2008Q3

REPORT INFORMATION
  Report Type: 
  Country: None (occurrence: None)
  Receive Date: 20080815
  Receipt Date: 20080804
  Transmission Date: 20090109
  Serious: Yes (Other)
  Sender: FDA-Public Use
  Company Number: US-PFIZER INC-2008066074

PATIENT
  Sex: Female

DRUGS (1)
  1. CHANTIX [Suspect]

REACTIONS (9)
  - ACTIVITIES OF DAILY LIVING IMPAIRED [None]
  - ANOREXIA [None]
  - DIARRHOEA [None]
  - FLUID INTAKE REDUCED [None]
  - HYPOPHAGIA [None]
  - MALAISE [None]
  - MOBILITY DECREASED [None]
  - NAUSEA [None]
  - VOMITING [None]
